FAERS Safety Report 19457365 (Version 1)
Quarter: 2021Q2

REPORT INFORMATION
  Report Type: Spontaneous
  Country: US (occurrence: US)
  Receive Date: 20210624
  Receipt Date: 20210624
  Transmission Date: 20210717
  Serious: Yes (Other)
  Sender: FDA-Public Use
  Company Number: US-GLAXOSMITHKLINE-US2021GSK134948

PATIENT

DRUGS (7)
  1. ZANTAC [Suspect]
     Active Substance: RANITIDINE HYDROCHLORIDE
     Indication: PROSTATE CANCER
     Dosage: UNK UNK, QD
     Route: 065
     Dates: start: 200801, end: 201001
  2. RANITIDINE. [Suspect]
     Active Substance: RANITIDINE
     Indication: PROSTATE CANCER
     Dosage: UNK UNK, QD
     Route: 065
     Dates: start: 200801, end: 201001
  3. ZANTAC [Suspect]
     Active Substance: RANITIDINE HYDROCHLORIDE
     Indication: PROSTATE CANCER
     Dosage: UNK UNK, QD
     Route: 065
     Dates: start: 200801, end: 201001
  4. RANITIDINE HYDROCHLORIDE. [Suspect]
     Active Substance: RANITIDINE HYDROCHLORIDE
     Indication: PROSTATE CANCER
     Dosage: UNK UNK, QD
     Route: 065
     Dates: start: 200801, end: 201001
  5. ZANTAC [Suspect]
     Active Substance: RANITIDINE HYDROCHLORIDE
     Indication: PROSTATE CANCER
     Dosage: UNK UNK, QD
     Route: 065
     Dates: start: 200801, end: 201001
  6. RANITIDINE HYDROCHLORIDE. [Suspect]
     Active Substance: RANITIDINE HYDROCHLORIDE
     Indication: PROSTATE CANCER
     Dosage: UNK UNK, QD
     Route: 065
     Dates: start: 200801, end: 201001
  7. RANITIDINE CAPSULE [Suspect]
     Active Substance: RANITIDINE
     Indication: PROSTATE CANCER
     Dosage: UNK UNK, QD
     Route: 065
     Dates: start: 200801, end: 201001

REACTIONS (1)
  - Prostate cancer [Unknown]
